FAERS Safety Report 10155663 (Version 1)
Quarter: 2014Q2

REPORT INFORMATION
  Report Type: Spontaneous
  Country: US (occurrence: US)
  Receive Date: 20140506
  Receipt Date: 20140506
  Transmission Date: 20141212
  Serious: Yes (Hospitalization)
  Sender: FDA-Public Use
  Company Number: US-GLAXOSMITHKLINE-A1072031A

PATIENT
  Sex: Male

DRUGS (3)
  1. FLOLAN [Suspect]
     Indication: PULMONARY ARTERIAL HYPERTENSION
     Dosage: 91NGKM CONTINUOUS
     Route: 042
     Dates: start: 20130530
  2. WARFARIN [Concomitant]
  3. ADCIRCA [Concomitant]

REACTIONS (1)
  - Device related infection [Unknown]
